FAERS Safety Report 9237342 (Version 2)
Quarter: 2013Q4

REPORT INFORMATION
  Report Type: Spontaneous
  Country: GB (occurrence: GB)
  Receive Date: 20130417
  Receipt Date: 20131023
  Transmission Date: 20140711
  Serious: Yes (Disabling)
  Sender: FDA-Public Use
  Company Number: GB-MYLANLABS-2013S1007523

PATIENT
  Age: 69 Year
  Sex: Male

DRUGS (5)
  1. GABAPENTIN [Suspect]
     Indication: NEURALGIA
     Route: 048
     Dates: end: 20130326
  2. DIAZEPAM [Concomitant]
     Indication: PRODUCT USED FOR UNKNOWN INDICATION
  3. FUROSEMIDE [Concomitant]
     Indication: PRODUCT USED FOR UNKNOWN INDICATION
  4. IBUPROFEN [Concomitant]
     Indication: PRODUCT USED FOR UNKNOWN INDICATION
  5. ZOPICLONE [Concomitant]
     Indication: PRODUCT USED FOR UNKNOWN INDICATION

REACTIONS (3)
  - Extremity contracture [Not Recovered/Not Resolved]
  - Hand deformity [Not Recovered/Not Resolved]
  - Neuropathy peripheral [Unknown]
